FAERS Safety Report 8432711-5 (Version None)
Quarter: 2012Q2

REPORT INFORMATION
  Report Type: 
  Country: None (occurrence: None)
  Receive Date: 20120323
  Receipt Date: 20110603
  Transmission Date: 20120825
  Serious: Yes (Other)
  Sender: FDA-Public Use
  Company Number: 163-21880-11060558

PATIENT
  Sex: Male

DRUGS (2)
  1. REVLIMID [Suspect]
     Indication: MULTIPLE MYELOMA
     Dosage: 15;10-15 MG, 1 IN 1 D, PO
     Route: 048
     Dates: start: 20100301
  2. REVLIMID [Suspect]
     Indication: MULTIPLE MYELOMA
     Dosage: 15;10-15 MG, 1 IN 1 D, PO
     Route: 048
     Dates: start: 20100601

REACTIONS (1)
  - PANCYTOPENIA [None]
